FAERS Safety Report 6671640-4 (Version None)
Quarter: 2010Q2

REPORT INFORMATION
  Report Type: 
  Country: None (occurrence: None)
  Receive Date: 20100407
  Receipt Date: 20100319
  Transmission Date: 20101027
  Serious: Yes (Hospitalization, Other)
  Sender: FDA-Public Use
  Company Number: US-GENZYME-CERZ-1001229

PATIENT
  Sex: Female

DRUGS (1)
  1. CEREZYME [Suspect]
     Indication: GAUCHER'S DISEASE

REACTIONS (5)
  - COLON CANCER [None]
  - DISEASE PROGRESSION [None]
  - INFECTION [None]
  - NEUROPATHY PERIPHERAL [None]
  - PAIN [None]
